FAERS Safety Report 6485135-4 (Version None)
Quarter: 2009Q4

REPORT INFORMATION
  Report Type: 
  Country: None (occurrence: None)
  Receive Date: 20091204
  Receipt Date: 20091126
  Transmission Date: 20100525
  Serious: Yes (Death, Disabling)
  Sender: FDA-Public Use
  Company Number: TCI2009A04741

PATIENT
  Age: 77 Year
  Sex: Male

DRUGS (11)
  1. ACTOS [Suspect]
     Indication: DIABETES MELLITUS
     Dosage: 15 MG (15 MG, 1 IN 1 D) , GASTROSTOMY TUBE
     Dates: start: 20090909, end: 20091002
  2. BASEN (VOGLIBOSE) [Suspect]
     Indication: DIABETES MELLITUS
     Dosage: 0.6 MG (0.2 MG, 3 IN 1 D), GASTROSTOMY TUBE
     Dates: start: 20090820, end: 20090930
  3. BASEN (VOGLIBOSE) [Suspect]
     Indication: POST GASTRIC SURGERY SYNDROME
     Dosage: 0.6 MG (0.2 MG, 3 IN 1 D), GASTROSTOMY TUBE
     Dates: start: 20090820, end: 20090930
  4. LAXOBERON (SODIUM PICOSULFATE) [Suspect]
     Indication: CONSTIPATION
     Dosage: 2.5 MG (2.5 MG, 1 IN 1 D), GASTROSTOMY TUBE
     Dates: start: 20090818, end: 20090930
  5. GASCON (DIMETICONE) [Suspect]
     Indication: ABDOMINAL DISTENSION
     Dosage: 120 MG (40 MG, 3 IN 1 D), GASTROSTOMY TUBE
     Dates: start: 20090822, end: 20090930
  6. METHYCOBAL (MECOBALAMIN) [Concomitant]
  7. SERENACE (HALOPERIDOL) [Concomitant]
  8. ZOLPIDEM TARTRATE [Concomitant]
  9. GOODMIN (BROTIZOLAM) [Concomitant]
  10. MICARDIS [Concomitant]
  11. PROMAC D (POLAPREZINC) [Concomitant]

REACTIONS (15)
  - ABDOMINAL DISTENSION [None]
  - ABNORMAL FAECES [None]
  - BLOOD GLUCOSE INCREASED [None]
  - CARDIAC FAILURE CONGESTIVE [None]
  - CONDITION AGGRAVATED [None]
  - CYANOSIS [None]
  - DEPRESSED LEVEL OF CONSCIOUSNESS [None]
  - DIARRHOEA [None]
  - FLATULENCE [None]
  - GASTROINTESTINAL DISORDER [None]
  - HYPOTHYROIDISM [None]
  - LIVER DISORDER [None]
  - OEDEMA PERIPHERAL [None]
  - OXYGEN SATURATION DECREASED [None]
  - PNEUMONIA STAPHYLOCOCCAL [None]
